FAERS Safety Report 9422421 (Version 1)
Quarter: 2013Q3

REPORT INFORMATION
  Report Type: Spontaneous
  Country: US (occurrence: None)
  Receive Date: 20130725
  Receipt Date: 20130725
  Transmission Date: 20140515
  Serious: Yes (Hospitalization)
  Sender: FDA-Public Use
  Company Number: None

PATIENT
  Age: 60 Year
  Sex: Male
  Weight: 106.5 kg

DRUGS (1)
  1. CISPLATIN [Suspect]
     Dosage: 100 MG/M2IV ON DI +22 WITH CONCURRENT IMRT 35 FRACTIONS OVER 6 WEEKS

REACTIONS (4)
  - Nausea [None]
  - Vomiting [None]
  - Pyrexia [None]
  - Pneumonia [None]
